FAERS Safety Report 9484273 (Version 1)
Quarter: 2013Q3

REPORT INFORMATION
  Report Type: Spontaneous
  Country: CA (occurrence: CA)
  Receive Date: 20130828
  Receipt Date: 20130828
  Transmission Date: 20140515
  Serious: Yes (Hospitalization)
  Sender: FDA-Public Use
  Company Number: CA-AMGEN-KDL399873

PATIENT
  Age: 79 Year
  Sex: Male
  Weight: 65.8 kg

DRUGS (1)
  1. ENBREL [Suspect]
     Indication: RHEUMATOID ARTHRITIS
     Dosage: UNK UNK, QWK
     Route: 065
     Dates: start: 20090818

REACTIONS (4)
  - Loss of consciousness [Recovering/Resolving]
  - Haemoglobin decreased [Recovering/Resolving]
  - Respiratory disorder [Recovering/Resolving]
  - Asthenia [Recovering/Resolving]
